FAERS Safety Report 6921613-9 (Version None)
Quarter: 2010Q3

REPORT INFORMATION
  Report Type: 
  Country: None (occurrence: None)
  Receive Date: 20100812
  Receipt Date: 20100802
  Transmission Date: 20110219
  Serious: Yes (Death)
  Sender: FDA-Public Use
  Company Number: JP-MERCK-1007USA01906

PATIENT
  Age: 72 Year
  Sex: Male

DRUGS (6)
  1. PEPCID [Suspect]
     Indication: PROPHYLAXIS AGAINST GASTROINTESTINAL ULCER
     Route: 042
     Dates: start: 20080206, end: 20080210
  2. WYSTAL [Suspect]
     Indication: INFECTION PROPHYLAXIS
     Route: 065
     Dates: start: 20080130, end: 20080211
  3. CIMETIRAN [Suspect]
     Indication: PROPHYLAXIS AGAINST GASTROINTESTINAL ULCER
     Route: 065
     Dates: start: 20080209, end: 20080211
  4. PANTOSIN [Suspect]
     Indication: PROPHYLAXIS
     Route: 065
     Dates: start: 20080211, end: 20080211
  5. DIGOSIN [Suspect]
     Indication: CARDIOVASCULAR EVENT PROPHYLAXIS
     Route: 065
     Dates: start: 20080211, end: 20080211
  6. ONOACT [Suspect]
     Indication: HEART RATE DECREASED
     Route: 065
     Dates: start: 20080211, end: 20080211

REACTIONS (2)
  - MULTI-ORGAN FAILURE [None]
  - TOXIC EPIDERMAL NECROLYSIS [None]
